FAERS Safety Report 8614071-X (Version None)
Quarter: 2012Q3

REPORT INFORMATION
  Report Type: 
  Country: None (occurrence: None)
  Receive Date: 20120823
  Receipt Date: 20120815
  Transmission Date: 20120928
  Serious: Yes (Hospitalization)
  Sender: FDA-Public Use
  Company Number: US-BAYER-2012-047888

PATIENT
  Age: 31 Year
  Sex: Female
  Weight: 98.413 kg

DRUGS (8)
  1. LORAZEPAM [Concomitant]
     Dosage: 1 MG, UNK
     Route: 048
  2. LEXAPRO [Concomitant]
     Dosage: 10 MG, UNK
     Route: 048
  3. DROSPIRENONE AND ETHINYL ESTRADIOL [Suspect]
     Indication: ACNE
     Dosage: UNK
     Dates: start: 20080101, end: 20100101
  4. MOTRIN [Concomitant]
  5. METFORMIN HCL [Concomitant]
     Dosage: 500 MG, UNK
     Route: 048
  6. METHOCARBAMOL [Concomitant]
     Dosage: 750 MG, UNK
     Route: 048
  7. TYLENOL [Concomitant]
  8. NAPROXEN [Concomitant]
     Dosage: 500 MG, UNK
     Route: 048

REACTIONS (3)
  - DEEP VEIN THROMBOSIS [None]
  - INJURY [None]
  - PAIN [None]
